FAERS Safety Report 13489714 (Version 3)
Quarter: 2017Q2

REPORT INFORMATION
  Report Type: Report from Study
  Country: BE (occurrence: BE)
  Receive Date: 20170427
  Receipt Date: 20170503
  Transmission Date: 20170830
  Serious: Yes (Death, Other)
  Sender: FDA-Public Use
  Company Number: BE-UCBSA-2017016203

PATIENT

DRUGS (1)
  1. LACOSAMIDE EP [Suspect]
     Active Substance: LACOSAMIDE
     Indication: EPILEPSY
     Dosage: UNK
     Route: 042

REACTIONS (3)
  - Pulmonary embolism [Fatal]
  - Pneumonia [Fatal]
  - Sepsis [Fatal]
